FAERS Safety Report 25962152 (Version 1)
Quarter: 2025Q4

REPORT INFORMATION
  Report Type: Spontaneous
  Country: US (occurrence: None)
  Receive Date: 20251024
  Receipt Date: 20251024
  Transmission Date: 20260117
  Serious: Yes (Hospitalization)
  Sender: FDA-CTU
  Company Number: None

PATIENT
  Age: 46 Year
  Sex: Female

DRUGS (6)
  1. DAPTOMYCIN [Suspect]
     Active Substance: DAPTOMYCIN
     Indication: Skin infection
  2. OMEPRAZOLE [Concomitant]
     Active Substance: OMEPRAZOLE
  3. CETIRIZINE HYDROCHLORIDE [Concomitant]
     Active Substance: CETIRIZINE HYDROCHLORIDE
  4. DOCUSATE [Concomitant]
     Active Substance: DOCUSATE
  5. PREGABALIN [Concomitant]
     Active Substance: PREGABALIN
  6. CANNABIS SATIVA SUBSP. INDICA TOP [Concomitant]
     Active Substance: CANNABIS SATIVA SUBSP. INDICA TOP

REACTIONS (8)
  - Back pain [None]
  - Asthenia [None]
  - Nausea [None]
  - Vomiting [None]
  - Catheter site erythema [None]
  - Pneumonia [None]
  - Catheter site infection [None]
  - Therapy change [None]

NARRATIVE: CASE EVENT DATE: 20250925
